FAERS Safety Report 5320138-4 (Version None)
Quarter: 2007Q2

REPORT INFORMATION
  Report Type: 
  Country: None (occurrence: None)
  Receive Date: 20070503
  Receipt Date: 20070425
  Transmission Date: 20071010
  Serious: Yes (Hospitalization)
  Sender: FDA-Public Use
  Company Number: 2007SP005603

PATIENT
  Age: 55 Year
  Sex: Female
  Weight: 117.9352 kg

DRUGS (10)
  1. PEG-INTRON [Suspect]
     Indication: HEPATITIS C
     Dosage: 150 MCG; SC
     Route: 058
     Dates: start: 20070223
  2. REBETOL [Suspect]
     Indication: HEPATITIS C
     Dosage: PO
     Route: 048
     Dates: start: 20070223
  3. POTASSIUM CHLORIDE [Concomitant]
  4. WELLBUTRIN [Concomitant]
  5. PRILOSEC /00661201/ [Concomitant]
  6. LISINOPRIL [Concomitant]
  7. LORTAB [Concomitant]
  8. PHENERGAN /00033001/ [Concomitant]
  9. COMBIVENT /01033501/ [Concomitant]
  10. FLEXERIL [Concomitant]

REACTIONS (10)
  - ANAEMIA [None]
  - BLOOD PRESSURE INCREASED [None]
  - DECREASED APPETITE [None]
  - HEADACHE [None]
  - LETHARGY [None]
  - NAUSEA [None]
  - PHOTOPHOBIA [None]
  - VISION BLURRED [None]
  - VOMITING [None]
  - WEIGHT DECREASED [None]
